FAERS Safety Report 6084445-2 (Version None)
Quarter: 2009Q1

REPORT INFORMATION
  Report Type: 
  Country: None (occurrence: None)
  Receive Date: 20090219
  Receipt Date: 20090211
  Transmission Date: 20090719
  Serious: Yes (Other)
  Sender: FDA-Public Use
  Company Number: ES-WYE-G03105809

PATIENT
  Age: 30 Year
  Sex: Female

DRUGS (4)
  1. VANDRAL RETARD [Suspect]
     Indication: DEPRESSION
     Route: 048
  2. VANDRAL RETARD [Suspect]
     Indication: ANXIETY
  3. CLORAZEPATE DIPOTASSIUM [Concomitant]
     Indication: DEPRESSION
     Route: 048
  4. CLORAZEPATE DIPOTASSIUM [Concomitant]
     Indication: ANXIETY

REACTIONS (2)
  - DRUG EXPOSURE DURING PREGNANCY [None]
  - INTRA-UTERINE DEATH [None]
